FAERS Safety Report 20754993 (Version 2)
Quarter: 2022Q2

REPORT INFORMATION
  Report Type: Report from Study
  Country: US (occurrence: US)
  Receive Date: 20220427
  Receipt Date: 20220506
  Transmission Date: 20220720
  Serious: Yes (Hospitalization, Other)
  Sender: FDA-Public Use
  Company Number: US-GILEAD-2022-0579002

PATIENT
  Sex: Male

DRUGS (1)
  1. SOFOSBUVIR\VELPATASVIR [Suspect]
     Active Substance: SOFOSBUVIR\VELPATASVIR
     Indication: Hepatitis C
     Dosage: 1 DOSAGE FORM
     Route: 048
     Dates: start: 20211121, end: 20220121

REACTIONS (4)
  - Depression [Unknown]
  - Hallucination [Unknown]
  - Drug abuser [Unknown]
  - Fatigue [Recovered/Resolved]
